FAERS Safety Report 23311056 (Version 4)
Quarter: 2024Q2

REPORT INFORMATION
  Report Type: Spontaneous
  Country: US (occurrence: US)
  Receive Date: 20231218
  Receipt Date: 20240411
  Transmission Date: 20240717
  Serious: Yes (Other)
  Sender: FDA-Public Use
  Company Number: US-BEH-2023166499

PATIENT
  Age: 51 Year
  Sex: Female

DRUGS (3)
  1. HUMATE-P [Suspect]
     Active Substance: HUMAN COAGULATION FACTOR VIII/VON WILLEBRAND FACTOR COMPLEX
     Indication: Von Willebrand^s disease
     Dosage: 3900 (3150-4290) RCOF UNITS, TIW (MONDAYS, WEDNESDAYS AND FRIDAYS)
     Route: 042
     Dates: start: 202205
  2. HEPARIN [Concomitant]
     Active Substance: HEPARIN SODIUM
     Dosage: 5 ML
  3. SODIUM CHLORIDE [Concomitant]
     Active Substance: SODIUM CHLORIDE
     Dosage: 10 ML

REACTIONS (12)
  - Haemarthrosis [Unknown]
  - Traumatic haemorrhage [Unknown]
  - Traumatic haemorrhage [Recovered/Resolved]
  - Arthralgia [Unknown]
  - Gait disturbance [Unknown]
  - Pain [Unknown]
  - Insomnia [Unknown]
  - Limb injury [Unknown]
  - Limb injury [Unknown]
  - Contusion [Unknown]
  - Coagulopathy [Unknown]
  - Pain in extremity [Unknown]

NARRATIVE: CASE EVENT DATE: 20240301
